FAERS Safety Report 25066491 (Version 1)
Quarter: 2025Q1

REPORT INFORMATION
  Report Type: Spontaneous
  Country: US (occurrence: US)
  Receive Date: 20250312
  Receipt Date: 20250312
  Transmission Date: 20250409
  Serious: No
  Sender: PURACAP PHARMACEUTICAL LLC
  Company Number: US-PURACAP-US-2025EPCSPO00225

PATIENT
  Age: 73 Year
  Sex: Female
  Weight: 170 kg

DRUGS (1)
  1. BENZONATATE [Suspect]
     Active Substance: BENZONATATE
     Indication: Cough
     Dosage: 1 OR 2 CAPSULES
     Route: 048
     Dates: start: 20250224, end: 20250224

REACTIONS (6)
  - Somnolence [Recovering/Resolving]
  - Feeling cold [Recovering/Resolving]
  - Chills [Recovered/Resolved]
  - Cough [Recovering/Resolving]
  - Fatigue [Recovering/Resolving]
  - Headache [Recovering/Resolving]

NARRATIVE: CASE EVENT DATE: 20250224
